FAERS Safety Report 17604217 (Version 1)
Quarter: 2020Q1

REPORT INFORMATION
  Report Type: Spontaneous
  Country: US (occurrence: US)
  Receive Date: 20200330
  Receipt Date: 20200330
  Transmission Date: 20200409
  Serious: No
  Sender: FDA-Public Use
  Company Number: None

PATIENT
  Age: 35 Year
  Sex: Female
  Weight: 58.5 kg

DRUGS (2)
  1. NORETHINDRONE ACETATE AND ETHINYL ESTRADIOL TABLETS USP AND FERROUS [Suspect]
     Active Substance: ETHINYL ESTRADIOL\FERROUS FUMARATE\NORETHINDRONE ACETATE
     Indication: ENDOMETRIOSIS
     Dosage: ?          QUANTITY:1 TABLET(S);?
     Route: 048
     Dates: start: 20200326, end: 20200330
  2. NORETHINDRONE ACETATE AND ETHINYL ESTRADIOL TABLETS USP AND FERROUS [Suspect]
     Active Substance: ETHINYL ESTRADIOL\FERROUS FUMARATE\NORETHINDRONE ACETATE
     Indication: CONTRACEPTION
     Dosage: ?          QUANTITY:1 TABLET(S);?
     Route: 048
     Dates: start: 20200326, end: 20200330

REACTIONS (4)
  - Dyspnoea [None]
  - Abdominal distension [None]
  - Abdominal pain [None]
  - Headache [None]

NARRATIVE: CASE EVENT DATE: 20200326
